FAERS Safety Report 25647044 (Version 1)
Quarter: 2025Q3

REPORT INFORMATION
  Report Type: Spontaneous
  Country: US (occurrence: US)
  Receive Date: 20250806
  Receipt Date: 20250806
  Transmission Date: 20251021
  Serious: No
  Sender: ALEXION PHARMACEUTICALS
  Company Number: US-AstraZeneca-CH-00923923AP

PATIENT
  Sex: Female

DRUGS (1)
  1. BREZTRI [Suspect]
     Active Substance: BUDESONIDE\FORMOTEROL\GLYCOPYRROLATE
     Dosage: UNK, BID
     Route: 065

REACTIONS (5)
  - Incorrect dose administered [Unknown]
  - Cough [Unknown]
  - Device defective [Unknown]
  - Visual impairment [Unknown]
  - Wrong technique in device usage process [Unknown]
